FAERS Safety Report 20885158 (Version 1)
Quarter: 2022Q2

REPORT INFORMATION
  Report Type: Spontaneous
  Country: CA (occurrence: CA)
  Receive Date: 20220527
  Receipt Date: 20220527
  Transmission Date: 20220720
  Serious: Yes (Death, Other)
  Sender: FDA-Public Use
  Company Number: CA-TAKEDA-2022TUS033735

PATIENT
  Sex: Male

DRUGS (2)
  1. GAMMAGARD LIQUID [Suspect]
     Active Substance: HUMAN IMMUNOGLOBULIN G
     Indication: Product used for unknown indication
     Dosage: 10 GRAM
     Route: 042
     Dates: start: 20220516, end: 20220516
  2. GAMMAGARD LIQUID [Suspect]
     Active Substance: HUMAN IMMUNOGLOBULIN G
     Dosage: 30 GRAM
     Route: 042
     Dates: start: 20220516, end: 20220516

REACTIONS (11)
  - Anaphylactic shock [Fatal]
  - Ventricular arrhythmia [Unknown]
  - Hypoxia [Unknown]
  - Brain injury [Unknown]
  - Loss of consciousness [Unknown]
  - COVID-19 pneumonia [Unknown]
  - Thrombocytopenia [Unknown]
  - Cardiac failure [Unknown]
  - Syncope [Unknown]
  - Heart rate decreased [Unknown]
  - Blood pressure decreased [Unknown]
